FAERS Safety Report 9776511 (Version 1)
Quarter: 2013Q4

REPORT INFORMATION
  Report Type: Spontaneous
  Country: DE (occurrence: DE)
  Receive Date: 20131220
  Receipt Date: 20131220
  Transmission Date: 20140711
  Serious: Yes (Hospitalization, Other)
  Sender: FDA-Public Use
  Company Number: DE-PFIZER INC-2013362912

PATIENT
  Age: 74 Year
  Sex: Male

DRUGS (2)
  1. DEXAMETHASONE SODIUM PHOSPHATE [Suspect]
     Indication: HYPOPHYSITIS
     Dosage: 12 MG, DAILY
     Route: 048
  2. IPILIMUMAB [Concomitant]
     Indication: MALIGNANT MELANOMA
     Dosage: 3 MG/KG BODY WEIGHT, UNK

REACTIONS (1)
  - Adrenocortical insufficiency acute [Unknown]
